FAERS Safety Report 7732665-0 (Version None)
Quarter: 2011Q3

REPORT INFORMATION
  Report Type: 
  Country: None (occurrence: None)
  Receive Date: 20110907
  Receipt Date: 20110826
  Transmission Date: 20111222
  Serious: Yes (Death, Life-Threatening, Hospitalization, Other)
  Sender: FDA-Public Use
  Company Number: US-BIOGENIDEC-2011BI028149

PATIENT
  Age: 60 Year
  Sex: Female

DRUGS (20)
  1. LYRICA [Concomitant]
     Route: 048
  2. MACRODANTIN [Concomitant]
     Route: 048
  3. ASCORBIC ACID [Concomitant]
     Route: 048
  4. CALCIUM CARBONATE [Concomitant]
     Route: 048
  5. IRON SUPPLEMENT [Concomitant]
     Route: 048
  6. KRILL OIL [Concomitant]
     Route: 048
  7. CENTRUM SILVER [Concomitant]
     Route: 048
  8. TYLENOL-500 [Concomitant]
     Route: 048
  9. NEXIUM [Concomitant]
     Route: 048
  10. ERGOCALCIFEROL [Concomitant]
     Route: 048
  11. DEPAKOTE ER [Concomitant]
     Route: 048
  12. TRIMETHOPRIM [Concomitant]
     Route: 048
  13. ENABLEX [Concomitant]
     Route: 048
  14. ATROVENT [Concomitant]
     Route: 055
  15. EZETIMIBE [Concomitant]
     Route: 048
  16. SIMVASTATIN [Concomitant]
     Route: 048
  17. TYSABRI [Suspect]
     Indication: MULTIPLE SCLEROSIS
     Route: 042
     Dates: start: 20071005, end: 20110419
  18. RECLAST [Concomitant]
     Route: 042
  19. NOVOLOG [Concomitant]
     Route: 058
  20. LEVOTHYROXINE SODIUM [Concomitant]
     Route: 048

REACTIONS (2)
  - NEOPLASM MALIGNANT [None]
  - SEPSIS [None]
